FAERS Safety Report 18431996 (Version 1)
Quarter: 2020Q4

REPORT INFORMATION
  Report Type: Spontaneous
  Country: JP (occurrence: JP)
  Receive Date: 20201027
  Receipt Date: 20201027
  Transmission Date: 20210114
  Serious: Yes (Other)
  Sender: FDA-Public Use
  Company Number: JP-JNJFOC-20201029552

PATIENT
  Age: 72 Year
  Sex: Female
  Weight: 60.6 kg

DRUGS (6)
  1. TELMISARTAN. [Concomitant]
     Active Substance: TELMISARTAN
     Route: 048
  2. XARELTO [Suspect]
     Active Substance: RIVAROXABAN
     Indication: ATRIAL FIBRILLATION
     Route: 048
  3. SITAGLIPTIN [Concomitant]
     Active Substance: SITAGLIPTIN
     Route: 048
  4. FEBUXOSTAT. [Concomitant]
     Active Substance: FEBUXOSTAT
     Route: 048
  5. BISOPROLOL [Concomitant]
     Active Substance: BISOPROLOL
     Route: 048
  6. OSIMERTINIB. [Concomitant]
     Active Substance: OSIMERTINIB
     Route: 048

REACTIONS (6)
  - Dyspnoea [Unknown]
  - Lung adenocarcinoma [Unknown]
  - Pleural effusion [Unknown]
  - Cardiac failure congestive [Unknown]
  - Haemothorax [Unknown]
  - Cardiac dysfunction [Unknown]

NARRATIVE: CASE EVENT DATE: 2019
